FAERS Safety Report 11908934 (Version 2)
Quarter: 2016Q1

REPORT INFORMATION
  Report Type: Report from Study
  Country: BR (occurrence: BR)
  Receive Date: 20160111
  Receipt Date: 20160208
  Transmission Date: 20160526
  Serious: Yes (Other)
  Sender: FDA-Public Use
  Company Number: PHHY2016BR001283

PATIENT
  Age: 74 Year
  Sex: Male
  Weight: 85 kg

DRUGS (2)
  1. EXELON PATCH [Suspect]
     Active Substance: RIVASTIGMINE
     Dosage: PATCH 5 (CM2)
     Route: 062
  2. EXELON PATCH [Suspect]
     Active Substance: RIVASTIGMINE
     Indication: PRODUCT USED FOR UNKNOWN INDICATION
     Dosage: PATCH 5 (CM2)
     Route: 062
     Dates: start: 20151222, end: 20151230

REACTIONS (2)
  - Hypersensitivity [Recovered/Resolved]
  - Ingrowing nail [Not Recovered/Not Resolved]
